FAERS Safety Report 22058096 (Version 1)
Quarter: 2023Q1

REPORT INFORMATION
  Report Type: Report from Study
  Country: CA (occurrence: CA)
  Receive Date: 20230303
  Receipt Date: 20230303
  Transmission Date: 20230418
  Serious: Yes (Other)
  Sender: FDA-Public Use
  Company Number: CA-JNJFOC-20211051624

PATIENT
  Sex: Male

DRUGS (1)
  1. REMICADE [Suspect]
     Active Substance: INFLIXIMAB
     Indication: Crohn^s disease
     Dosage: ON 31-AUG-2021, THE PATIENT RECEIVED REMICADE INFUSION.
     Dates: start: 20130301

REACTIONS (4)
  - Pilonidal disease [Unknown]
  - Arterial rupture [Recovering/Resolving]
  - Angioedema [Recovered/Resolved]
  - Post procedural complication [Recovering/Resolving]

NARRATIVE: CASE EVENT DATE: 20210101
